FAERS Safety Report 5304675-4 (Version None)
Quarter: 2007Q2

REPORT INFORMATION
  Report Type: 
  Country: None (occurrence: None)
  Receive Date: 20070416
  Receipt Date: 20070402
  Transmission Date: 20071010
  Serious: Yes (Hospitalization)
  Sender: FDA-Public Use
  Company Number: MEDI-0004375

PATIENT
  Age: 11 Month
  Sex: Female

DRUGS (7)
  1. SYNAGIS [Suspect]
     Indication: PREMATURE BABY
     Dosage: 100 MG, 1 IN 30 D INTRAMUSCULAR
     Route: 030
     Dates: start: 20051010, end: 20060109
  2. SYNAGIS [Suspect]
     Indication: BRONCHOPULMONARY DYSPLASIA
     Dosage: 75 MG, 1 IN 30 D INTRAMUSCULAR
     Route: 030
     Dates: start: 20051010
  3. SYNAGIS [Suspect]
     Dosage: 75 MG, 1 IN 30 D, INTRAMUSCULAR
     Route: 030
     Dates: start: 20051114
  4. SYNAGIS [Suspect]
     Dosage: 100 MG, 1 IN 30 D, INTRAMUSCULAR
     Route: 030
     Dates: start: 20051212
  5. SYNAGIS [Suspect]
     Dosage: 100 MG, 1 IN 30 D INTRAMUSCULAR
     Route: 030
     Dates: start: 20060213, end: 20060213
  6. ERGOCALCIFEROL [Concomitant]
  7. FLUOR [Concomitant]

REACTIONS (1)
  - RETINOPATHY [None]
